FAERS Safety Report 14948906 (Version 1)
Quarter: 2018Q2

REPORT INFORMATION
  Report Type: Spontaneous
  Country: SE (occurrence: SE)
  Receive Date: 20180529
  Receipt Date: 20180529
  Transmission Date: 20180711
  Serious: Yes (Other)
  Sender: FDA-Public Use
  Company Number: SE-GLAXOSMITHKLINE-SE2018091698

PATIENT
  Age: 53 Year
  Sex: Female

DRUGS (1)
  1. VOXRA [Suspect]
     Active Substance: BUPROPION HYDROCHLORIDE
     Indication: POST-TRAUMATIC STRESS DISORDER
     Dosage: UNK
     Route: 065

REACTIONS (9)
  - Feeling abnormal [Recovered/Resolved]
  - Migraine [Recovering/Resolving]
  - Appetite disorder [Recovered/Resolved]
  - Anosmia [Recovered/Resolved]
  - Dry mouth [Recovered/Resolved]
  - Functional gastrointestinal disorder [Recovered/Resolved]
  - Withdrawal syndrome [Recovering/Resolving]
  - Ageusia [Recovered/Resolved]
  - Skin exfoliation [Recovered/Resolved]

NARRATIVE: CASE EVENT DATE: 20180216
